FAERS Safety Report 11794007 (Version 4)
Quarter: 2024Q2

REPORT INFORMATION
  Report Type: Report from Study
  Country: FR (occurrence: FR)
  Receive Date: 20151202
  Receipt Date: 20240422
  Transmission Date: 20240716
  Serious: Yes (Other)
  Sender: FDA-Public Use
  Company Number: FR-SA-2015SA199333

PATIENT
  Age: 34 Year
  Sex: Male

DRUGS (15)
  1. FLUOROURACIL [Suspect]
     Active Substance: FLUOROURACIL
     Indication: Colorectal cancer metastatic
     Dosage: UNK UNK, QCY, AS PART OF FOLFORINOX CHEMOTHERAPY
  2. FLUOROURACIL [Suspect]
     Active Substance: FLUOROURACIL
     Dosage: AS PART OF FOLFORI
  3. FLUOROURACIL [Suspect]
     Active Substance: FLUOROURACIL
     Dosage: FOLFIRI-AFLIBERCEPT REGIMEN WAS RE-INTRODUCED WITHOUT DOSE REDUCTION
  4. AFLIBERCEPT [Suspect]
     Active Substance: AFLIBERCEPT
     Indication: Colorectal cancer metastatic
     Dosage: UNK
  5. AFLIBERCEPT [Suspect]
     Active Substance: AFLIBERCEPT
     Dosage: UNK, QCY, FOLFIRI-AFLIBERCEPT REGIMEN WAS RE-INTRODUCED WITHOUT DOSE REDUCTION
  6. IRINOTECAN [Suspect]
     Active Substance: IRINOTECAN
     Indication: Colorectal cancer metastatic
     Dosage: UNK, QCY, AS PART OF FOLFORINOX CHEMOTHERAPY
  7. IRINOTECAN [Suspect]
     Active Substance: IRINOTECAN
     Dosage: UNK UNK, QCY, AS PART OF FOLFIRI
  8. IRINOTECAN [Suspect]
     Active Substance: IRINOTECAN
     Dosage: FOLFIRI-AFLIBERCEPT REGIMEN WAS RE-INTRODUCED WITHOUT DOSE REDUCTION
  9. LEUCOVORIN [Suspect]
     Active Substance: LEUCOVORIN\LEUCOVORIN CALCIUM
     Indication: Colorectal cancer metastatic
     Dosage: UNK, QCY, AS PART OF FOLFORINOX CHEMOTHERAPY
     Route: 065
  10. LEUCOVORIN [Suspect]
     Active Substance: LEUCOVORIN\LEUCOVORIN CALCIUM
     Dosage: AS PART OF FOLFIRI
     Route: 065
  11. LEUCOVORIN [Suspect]
     Active Substance: LEUCOVORIN\LEUCOVORIN CALCIUM
     Dosage: FOLFIRI-AFLIBERCEPT REGIMEN WAS RE-INTRODUCED WITHOUT DOSE REDUCTION
  12. OXALIPLATIN [Concomitant]
     Active Substance: OXALIPLATIN
     Indication: Colorectal cancer metastatic
     Dosage: UNK UNK, QCY
  13. OXALIPLATIN [Concomitant]
     Active Substance: OXALIPLATIN
     Dosage: UNK
  14. BEVACIZUMAB [Concomitant]
     Active Substance: BEVACIZUMAB
     Indication: Colorectal cancer metastatic
     Dosage: UNK
  15. BEVACIZUMAB [Concomitant]
     Active Substance: BEVACIZUMAB
     Dosage: UNK

REACTIONS (3)
  - Colitis microscopic [Recovering/Resolving]
  - Diarrhoea [Recovering/Resolving]
  - Weight decreased [Recovering/Resolving]
